FAERS Safety Report 4641140-1 (Version None)
Quarter: 2005Q2

REPORT INFORMATION
  Report Type: 
  Country: None (occurrence: None)
  Receive Date: 20050322
  Receipt Date: 20040712
  Transmission Date: 20051028
  Serious: Yes (Other)
  Sender: FDA-Public Use
  Company Number: HQWYE044513JUL04

PATIENT
  Sex: Female
  Weight: 70.37 kg

DRUGS (2)
  1. PROTONIX [Suspect]
     Indication: ULCER
     Dosage: SEE IMAGE
     Route: 048
     Dates: start: 20030101, end: 20030101
  2. PROTONIX [Suspect]
     Indication: ULCER
     Dosage: SEE IMAGE
     Route: 048
     Dates: start: 20040610, end: 20040610

REACTIONS (5)
  - DYSPNOEA [None]
  - HYPERSENSITIVITY [None]
  - HYPOAESTHESIA [None]
  - PRURITUS [None]
  - URTICARIA [None]
